FAERS Safety Report 12529148 (Version 1)
Quarter: 2016Q3

REPORT INFORMATION
  Report Type: Spontaneous
  Country: IT (occurrence: IT)
  Receive Date: 20160705
  Receipt Date: 20160705
  Transmission Date: 20161109
  Serious: Yes (Hospitalization)
  Sender: FDA-Public Use
  Company Number: IT-ALLERGAN-1627164

PATIENT
  Age: 57 Year
  Sex: Male

DRUGS (2)
  1. MESALAZINE UNK [Suspect]
     Active Substance: MESALAMINE
     Dosage: 800 MG, TID
     Route: 048
     Dates: end: 199711
  2. MESALAZINE UNK [Suspect]
     Active Substance: MESALAMINE
     Indication: COLITIS ULCERATIVE
     Dosage: 800 MG, BID
     Route: 048
     Dates: start: 199410

REACTIONS (8)
  - Pyrexia [Recovered/Resolved]
  - Cough [Recovered/Resolved]
  - Traumatic lung injury [Recovered/Resolved]
  - Pneumonitis [None]
  - Hepatomegaly [Unknown]
  - Atelectasis [None]
  - Dyspnoea [Recovered/Resolved]
  - Hepatic cirrhosis [None]

NARRATIVE: CASE EVENT DATE: 199611
